FAERS Safety Report 10110686 (Version 2)
Quarter: 2014Q2

REPORT INFORMATION
  Report Type: Spontaneous
  Country: US (occurrence: US)
  Receive Date: 20140425
  Receipt Date: 20140620
  Transmission Date: 20141212
  Serious: Yes (Hospitalization)
  Sender: FDA-Public Use
  Company Number: US-B.I. PHARMACEUTICALS,INC./RIDGEFIELD-2014-BI-18208BP

PATIENT
  Age: 54 Year
  Sex: Female
  Weight: 90.26 kg

DRUGS (1)
  1. MIRAPEX [Suspect]
     Indication: RESTLESS LEGS SYNDROME
     Dosage: 0.75 MG
     Route: 048
     Dates: start: 20090908

REACTIONS (1)
  - Chronic obstructive pulmonary disease [Not Recovered/Not Resolved]
